FAERS Safety Report 4832110-9 (Version None)
Quarter: 2005Q4

REPORT INFORMATION
  Report Type: 
  Country: None (occurrence: None)
  Receive Date: 20051116
  Receipt Date: 20051102
  Transmission Date: 20060501
  Serious: Yes (Hospitalization, Disabling)
  Sender: FDA-Public Use
  Company Number: 8012710

PATIENT
  Age: 78 Year
  Sex: Female

DRUGS (9)
  1. ZAROXOLYN [Suspect]
     Indication: HYPERTENSION
     Dosage: 10 MG /D PO
     Route: 048
     Dates: start: 20050630
  2. ZAROXOLYN [Suspect]
     Indication: OEDEMA
     Dosage: 10 MG /D PO
     Route: 048
     Dates: start: 20050630
  3. APRESOLINE [Concomitant]
  4. INSULIN RAPID [Concomitant]
  5. INSULIN ILETIN I [Concomitant]
  6. LASIX [Concomitant]
  7. PANALOC [Concomitant]
  8. ALLOPURINOL [Concomitant]
  9. NEURONTIN [Concomitant]

REACTIONS (4)
  - ARTHRITIS BACTERIAL [None]
  - GOUT [None]
  - PAIN [None]
  - RENAL IMPAIRMENT [None]
